FAERS Safety Report 14754617 (Version 1)
Quarter: 2018Q2

REPORT INFORMATION
  Report Type: Spontaneous
  Country: US (occurrence: US)
  Receive Date: 20180413
  Receipt Date: 20180413
  Transmission Date: 20180711
  Serious: No
  Sender: FDA-Public Use
  Company Number: US-JNJFOC-20180324966

PATIENT
  Age: 6 Decade
  Sex: Female
  Weight: 70.31 kg

DRUGS (3)
  1. KEFLEX [Concomitant]
     Active Substance: CEPHALEXIN
     Indication: OROPHARYNGEAL PAIN
     Route: 048
     Dates: start: 20171030, end: 20171030
  2. TYLENOL EXTRA STRENGTH [Suspect]
     Active Substance: ACETAMINOPHEN
     Indication: HEADACHE
     Route: 065
  3. ROBITUSSIN (GUAIFENESIN) [Concomitant]
     Active Substance: GUAIFENESIN
     Indication: OROPHARYNGEAL PAIN
     Route: 048
     Dates: start: 20171030, end: 20171030

REACTIONS (1)
  - Drug effect incomplete [Unknown]
